FAERS Safety Report 4428852-X (Version None)
Quarter: 2004Q3

REPORT INFORMATION
  Report Type: 
  Country: None (occurrence: None)
  Receive Date: 20040813
  Receipt Date: 20040803
  Transmission Date: 20050211
  Serious: Yes (Death)
  Sender: FDA-Public Use
  Company Number: BRO-007677

PATIENT
  Age: 64 Year
  Sex: Female

DRUGS (2)
  1. IOPAMIDOL-300 [Suspect]
     Indication: AORTIC ANEURYSM
     Dosage: IV
     Route: 042
     Dates: start: 20040720, end: 20040720
  2. IOPAMIDOL-300 [Suspect]
     Indication: COMPUTERISED TOMOGRAM
     Dosage: IV
     Route: 042
     Dates: start: 20040720, end: 20040720

REACTIONS (8)
  - AORTIC ANEURYSM RUPTURE [None]
  - CONTRAST MEDIA REACTION [None]
  - DYSPNOEA [None]
  - LOSS OF CONSCIOUSNESS [None]
  - MYDRIASIS [None]
  - NAUSEA [None]
  - PROCEDURAL COMPLICATION [None]
  - VOMITING [None]
